FAERS Safety Report 7077543-8 (Version None)
Quarter: 2010Q4

REPORT INFORMATION
  Report Type: 
  Country: None (occurrence: None)
  Receive Date: 20101101
  Receipt Date: 20101020
  Transmission Date: 20110411
  Serious: Yes (Other)
  Sender: FDA-Public Use
  Company Number: US-PFIZER INC-2010134596

PATIENT
  Sex: Male
  Weight: 104.31 kg

DRUGS (4)
  1. DILANTIN [Suspect]
     Indication: CONVULSION
     Dosage: 200 MG, 2X/DAY
     Dates: start: 19830101
  2. VITAMIN B [Interacting]
     Indication: NEUROPATHY PERIPHERAL
     Dosage: UNK
  3. VITAMIN E [Concomitant]
     Dosage: UNK
  4. POTASSIUM [Concomitant]
     Dosage: UNK

REACTIONS (7)
  - DRUG INTERACTION [None]
  - EPILEPTIC AURA [None]
  - NAUSEA [None]
  - NERVOUSNESS [None]
  - NEUROPATHY PERIPHERAL [None]
  - PROSTATE CANCER [None]
  - VITAMIN B12 DEFICIENCY [None]
